FAERS Safety Report 13826626 (Version 1)
Quarter: 2017Q3

REPORT INFORMATION
  Report Type: Spontaneous
  Country: US (occurrence: US)
  Receive Date: 20170802
  Receipt Date: 20170802
  Transmission Date: 20171127
  Serious: No
  Sender: FDA-Public Use
  Company Number: US-ROCHE-648161

PATIENT
  Age: 54 Year
  Sex: Female

DRUGS (1)
  1. BONIVA [Suspect]
     Active Substance: IBANDRONATE SODIUM
     Indication: OSTEOPENIA
     Route: 048

REACTIONS (4)
  - Vomiting [Unknown]
  - Musculoskeletal chest pain [Unknown]
  - Diarrhoea [Unknown]
  - Abdominal pain [Unknown]
